FAERS Safety Report 18747697 (Version 3)
Quarter: 2021Q3

REPORT INFORMATION
  Report Type: Report from Study
  Country: US (occurrence: US)
  Receive Date: 20210115
  Receipt Date: 20210911
  Transmission Date: 20211014
  Serious: No
  Sender: FDA-Public Use
  Company Number: NVSC2021US008504

PATIENT
  Age: 64 Year
  Sex: Male

DRUGS (2)
  1. ENTRESTO [Suspect]
     Active Substance: SACUBITRIL\VALSARTAN
     Indication: CARDIAC FAILURE CONGESTIVE
     Dosage: 1 DF, BID (49/51 MG)
     Route: 048
     Dates: start: 20200902
  2. ENTRESTO [Suspect]
     Active Substance: SACUBITRIL\VALSARTAN
     Dosage: 0.5 DF (24/26 MG)
     Route: 048

REACTIONS (7)
  - Dyspnoea [Recovering/Resolving]
  - Gait disturbance [Not Recovered/Not Resolved]
  - Blood glucose increased [Unknown]
  - Product prescribing error [Unknown]
  - Underdose [Unknown]
  - Stress [Unknown]
  - Wrong technique in product usage process [Unknown]

NARRATIVE: CASE EVENT DATE: 20210215
